FAERS Safety Report 12532450 (Version 1)
Quarter: 2016Q3

REPORT INFORMATION
  Report Type: Spontaneous
  Country: US (occurrence: US)
  Receive Date: 20160706
  Receipt Date: 20160706
  Transmission Date: 20161109
  Serious: No
  Sender: FDA-Public Use
  Company Number: US-PURDUE-USA-2015-0124750

PATIENT
  Sex: Female

DRUGS (1)
  1. BUTRANS [Suspect]
     Active Substance: BUPRENORPHINE
     Indication: PAIN
     Dosage: 10 MCG/HR, WEEKLY
     Route: 062
     Dates: start: 201312

REACTIONS (7)
  - Myalgia [Unknown]
  - Chills [Unknown]
  - Somnolence [Unknown]
  - Nausea [Unknown]
  - Rash [Unknown]
  - Drug effect increased [Unknown]
  - Drug administered at inappropriate site [Unknown]
